FAERS Safety Report 21953813 (Version 1)
Quarter: 2023Q1

REPORT INFORMATION
  Report Type: Report from Study
  Country: US (occurrence: US)
  Receive Date: 20230204
  Receipt Date: 20230204
  Transmission Date: 20230417
  Serious: No
  Sender: FDA-Public Use
  Company Number: US-ACORDA-ACO_172932_2022

PATIENT
  Sex: Female

DRUGS (2)
  1. AMPYRA [Suspect]
     Active Substance: DALFAMPRIDINE
     Indication: Multiple sclerosis
     Dosage: 10 MILLIGRAM, BID
     Route: 048
  2. OCREVUS [Concomitant]
     Active Substance: OCRELIZUMAB
     Indication: Product used for unknown indication
     Dosage: INFUSE 600MG IN 500ML 0.9% NS AT 40ML/HR AND INCREASE BY 40ML/HR EVERY 30 MIN (MAX 200ML/HR) OVER AT
     Route: 042

REACTIONS (3)
  - Dyspepsia [Unknown]
  - Vomiting [Unknown]
  - Dizziness [Unknown]
